FAERS Safety Report 9008507 (Version 1)
Quarter: 2013Q1

REPORT INFORMATION
  Report Type: Spontaneous
  Country: FR (occurrence: FR)
  Receive Date: 20130111
  Receipt Date: 20130111
  Transmission Date: 20140127
  Serious: Yes (Other)
  Sender: FDA-Public Use
  Company Number: FR-PFIZER INC-2013008688

PATIENT
  Age: 34 Year
  Sex: Male

DRUGS (3)
  1. ORELOX [Suspect]
     Indication: SINUSITIS
     Dosage: 200 MG, 2X/DAY
     Route: 048
     Dates: start: 20121019, end: 20121023
  2. IBUPROFEN [Suspect]
     Indication: SINUSITIS
     Dosage: AS NEEDED
     Route: 048
     Dates: start: 20121019, end: 20121023
  3. SOLUPRED [Suspect]
     Indication: SINUSITIS
     Dosage: 30 MG, DAILY
     Route: 048
     Dates: start: 20121019, end: 20121023

REACTIONS (4)
  - Rhabdomyolysis [Unknown]
  - Myalgia [Unknown]
  - Pain [Unknown]
  - Pyrexia [Unknown]
